FAERS Safety Report 6720926-3 (Version None)
Quarter: 2010Q2

REPORT INFORMATION
  Report Type: 
  Country: None (occurrence: None)
  Receive Date: 20100512
  Receipt Date: 20100505
  Transmission Date: 20101027
  Serious: Yes (Other)
  Sender: FDA-Public Use
  Company Number: US-JNJFOC-20100502440

PATIENT
  Sex: Female
  Weight: 90.72 kg

DRUGS (12)
  1. DURAGESIC-100 [Suspect]
     Indication: PAIN
     Route: 062
  2. LYRICA [Suspect]
     Indication: SPINAL COLUMN STENOSIS
     Route: 065
  3. LYRICA [Suspect]
     Indication: CERVICAL SPINAL STENOSIS
     Route: 065
  4. LYRICA [Suspect]
     Indication: PAIN
     Route: 065
  5. DURAGESIC-100 [Suspect]
     Dosage: NDC 50458-093-05
     Route: 062
  6. METHOTREXATE [Concomitant]
     Indication: OSTEOARTHRITIS
     Route: 030
  7. PANTOPRAZOLE [Concomitant]
     Indication: GASTROOESOPHAGEAL REFLUX DISEASE
     Route: 048
  8. DIOVAN [Concomitant]
     Indication: ANGINA PECTORIS
     Route: 048
  9. ASPIRIN [Concomitant]
     Indication: ANGINA PECTORIS
     Route: 048
  10. PROZAC [Concomitant]
     Indication: DEPRESSION
     Route: 048
  11. KLONOPIN [Concomitant]
     Indication: DEPRESSION
     Route: 048
  12. PREDNISONE [Concomitant]
     Indication: OSTEOARTHRITIS
     Route: 048

REACTIONS (5)
  - CERVICAL SPINAL STENOSIS [None]
  - FIBROMYALGIA [None]
  - GASTROOESOPHAGEAL REFLUX DISEASE [None]
  - PERSONALITY CHANGE [None]
  - SJOGREN'S SYNDROME [None]
